FAERS Safety Report 4486164-2 (Version None)
Quarter: 2004Q4

REPORT INFORMATION
  Report Type: 
  Country: None (occurrence: None)
  Receive Date: 20041021
  Receipt Date: 20041015
  Transmission Date: 20050328
  Serious: Yes (Death, Hospitalization)
  Sender: FDA-Public Use
  Company Number: TUK2004A00096

PATIENT
  Age: 63 Year
  Sex: Male

DRUGS (3)
  1. ACTOS [Suspect]
     Indication: DIABETES MELLITUS
  2. LERCANIDIPINE [Concomitant]
  3. CEPHALOSPORIN (CEPHALOSPORINS AND RELATED SUBSTANCES) [Concomitant]

REACTIONS (12)
  - ACIDOSIS [None]
  - ALCOHOL POISONING [None]
  - BLOOD ALBUMIN DECREASED [None]
  - BLOOD CREATINE INCREASED [None]
  - ENCEPHALOPATHY [None]
  - FEELING ABNORMAL [None]
  - HEPATIC FAILURE [None]
  - HEPATIC FIBROSIS [None]
  - HEPATIC NECROSIS [None]
  - HEPATIC STEATOSIS [None]
  - HEPATOCELLULAR DAMAGE [None]
  - PROTHROMBIN TIME PROLONGED [None]
